FAERS Safety Report 11192789 (Version 1)
Quarter: 2015Q2

REPORT INFORMATION
  Report Type: Spontaneous
  Country: US (occurrence: US)
  Receive Date: 20150616
  Receipt Date: 20150616
  Transmission Date: 20150821
  Serious: Yes (Hospitalization, Other)
  Sender: FDA-Public Use
  Company Number: US-AMGEN-USASP2015057709

PATIENT
  Age: 65 Year
  Sex: Male

DRUGS (1)
  1. ENBREL [Suspect]
     Active Substance: ETANERCEPT
     Indication: PSORIATIC ARTHROPATHY
     Dosage: UNK UNK, QWK
     Route: 065
     Dates: start: 20130101, end: 201407

REACTIONS (9)
  - Mobility decreased [Recovered/Resolved]
  - Cervical vertebral fracture [Not Recovered/Not Resolved]
  - Hypoaesthesia [Not Recovered/Not Resolved]
  - Arthralgia [Not Recovered/Not Resolved]
  - Arthropathy [Recovered/Resolved]
  - Pericardial effusion [Recovered/Resolved]
  - Psoriasis [Not Recovered/Not Resolved]
  - Road traffic accident [Recovered/Resolved]
  - Rotator cuff repair [Unknown]

NARRATIVE: CASE EVENT DATE: 201304
